FAERS Safety Report 7804659-8 (Version None)
Quarter: 2011Q4

REPORT INFORMATION
  Report Type: 
  Country: None (occurrence: None)
  Receive Date: 20111010
  Receipt Date: 20111005
  Transmission Date: 20120403
  Serious: Yes (Hospitalization)
  Sender: FDA-Public Use
  Company Number: JP-EISAI INC-E2090-01787-SPO-JP

PATIENT
  Age: 19 Year
  Sex: Male

DRUGS (2)
  1. ZONISAMIDE [Suspect]
     Indication: EPILEPSY
     Dosage: 200 MG
     Route: 048
  2. LANSOPRAZOLE [Concomitant]
     Dosage: 30 MG

REACTIONS (1)
  - CALCULUS BLADDER [None]
